FAERS Safety Report 5710595-3 (Version None)
Quarter: 2008Q2

REPORT INFORMATION
  Report Type: 
  Country: None (occurrence: None)
  Receive Date: 20080415
  Receipt Date: 20080402
  Transmission Date: 20081010
  Serious: Yes (Hospitalization)
  Sender: FDA-Public Use
  Company Number: 2007BI006537

PATIENT
  Sex: Male

DRUGS (3)
  1. AVONEX [Suspect]
     Indication: MULTIPLE SCLEROSIS
     Dosage: 30 UG QW IM
     Route: 030
     Dates: start: 20001012
  2. TYLENOL [Concomitant]
  3. CIALIS [Concomitant]

REACTIONS (5)
  - GASTRIC BYPASS [None]
  - HEMIPARESIS [None]
  - HYPOAESTHESIA [None]
  - POLYNEUROPATHY [None]
  - SCIATICA [None]
